FAERS Safety Report 7674314-6 (Version None)
Quarter: 2011Q3

REPORT INFORMATION
  Report Type: 
  Country: None (occurrence: None)
  Receive Date: 20110810
  Receipt Date: 20110801
  Transmission Date: 20111222
  Serious: Yes (Life-Threatening, Hospitalization)
  Sender: FDA-Public Use
  Company Number: US-NOVOPROD-332962

PATIENT
  Sex: Female
  Weight: 78.912 kg

DRUGS (10)
  1. LEVEMIR [Suspect]
     Indication: TYPE 2 DIABETES MELLITUS
     Dosage: 20 U, QD IN THE AM
     Route: 058
     Dates: start: 20080101, end: 20100518
  2. NOVOLOG MIX 70/30 [Suspect]
     Indication: TYPE 2 DIABETES MELLITUS
     Dosage: SLIDING SCALE ONLY WHEN BLOOD SUGARS OVER 300MG/DL AND MD OKS USE
     Route: 058
     Dates: start: 20080101
  3. LORAZEPAM [Concomitant]
     Indication: PRODUCT USED FOR UNKNOWN INDICATION
     Dosage: UNK
     Route: 048
  4. LANTUS [Concomitant]
     Dosage: UNK
     Route: 058
     Dates: start: 20110601
  5. PREMARIN [Concomitant]
     Indication: HOT FLUSH
     Dosage: UNK
     Route: 048
  6. GLIPIZIDE [Concomitant]
     Indication: TYPE 2 DIABETES MELLITUS
     Dosage: UNK
     Route: 048
  7. LEVEMIR [Suspect]
     Dosage: 20 U QD IN THE AM
     Route: 058
     Dates: start: 20080101, end: 20100518
  8. CRESTOR [Concomitant]
     Indication: BLOOD CHOLESTEROL INCREASED
     Dosage: UNK
     Route: 048
  9. LANTUS [Concomitant]
     Indication: TYPE 2 DIABETES MELLITUS
     Dosage: 32 U, QD AT NIGHT
     Route: 058
     Dates: start: 20100605, end: 20101001
  10. METFORMIN HYDROCHLORIDE [Concomitant]
     Indication: TYPE 2 DIABETES MELLITUS
     Dosage: UNK
     Route: 048

REACTIONS (4)
  - RESPIRATORY ARREST [None]
  - RENAL FAILURE ACUTE [None]
  - HEPATIC FAILURE [None]
  - BLOOD GLUCOSE INCREASED [None]
